FAERS Safety Report 7208806-0 (Version None)
Quarter: 2011Q1

REPORT INFORMATION
  Report Type: 
  Country: None (occurrence: None)
  Receive Date: 20110104
  Receipt Date: 20101222
  Transmission Date: 20110831
  Serious: Yes (Hospitalization, Other)
  Sender: FDA-Public Use
  Company Number: PHHY2010CA69668

PATIENT
  Sex: Male

DRUGS (5)
  1. VITAMIN D [Concomitant]
     Dosage: 1000 IU, QD
     Route: 048
  2. EXJADE [Suspect]
     Dosage: 1000/500 MG
     Route: 048
     Dates: start: 20101101
  3. CALTRATE [Concomitant]
     Dosage: 500 MG, 2 TABS PER DAY
     Route: 048
  4. FOLIC ACID [Concomitant]
     Dosage: 5 MG, QD
     Route: 048
  5. EXJADE [Suspect]
     Indication: HAEMOLYTIC ANAEMIA
     Dosage: 2000 MG, QD
     Route: 048
     Dates: start: 20100608, end: 20101001

REACTIONS (5)
  - RED BLOOD CELL COUNT DECREASED [None]
  - PYREXIA [None]
  - WHITE BLOOD CELL COUNT DECREASED [None]
  - NEUTROPENIA [None]
  - MALAISE [None]
